FAERS Safety Report 6719707-6 (Version None)
Quarter: 2010Q2

REPORT INFORMATION
  Report Type: 
  Country: None (occurrence: None)
  Receive Date: 20100511
  Receipt Date: 20100426
  Transmission Date: 20101027
  Serious: Yes (Disabling)
  Sender: FDA-Public Use
  Company Number: PHHY2010FI26603

PATIENT
  Sex: Female

DRUGS (4)
  1. ZOMETA [Suspect]
     Indication: MULTIPLE MYELOMA
     Dosage: 4 MG, 1-3 MONTHS INTERVAL
     Dates: end: 20091009
  2. REVLIMID [Concomitant]
     Dosage: 10 MG, PER DAY
     Dates: start: 20090601
  3. CALCICHEW D3 [Concomitant]
     Dosage: 2 DF, PER DAY
  4. DEXAMETASON [Concomitant]
     Dosage: 20 MG PER WEEK

REACTIONS (2)
  - LOOSE TOOTH [None]
  - OSTEONECROSIS OF JAW [None]
